FAERS Safety Report 5507705-X (Version None)
Quarter: 2007Q4

REPORT INFORMATION
  Report Type: 
  Country: None (occurrence: None)
  Receive Date: 20071106
  Receipt Date: 20071102
  Transmission Date: 20080405
  Serious: Yes (Hospitalization)
  Sender: FDA-Public Use
  Company Number: B0493966A

PATIENT
  Age: 24 Year
  Sex: Female

DRUGS (5)
  1. CLAMOXYL [Suspect]
     Indication: STREPTOCOCCAL INFECTION
     Dosage: 1G TWICE PER DAY
     Route: 048
     Dates: start: 20070612, end: 20070613
  2. ADIAZINE [Suspect]
     Indication: CHORIORETINITIS
     Dosage: 5G PER DAY
     Route: 048
     Dates: start: 20070607, end: 20070616
  3. PYRIMETHAMINE TAB [Concomitant]
     Indication: CHORIORETINITIS
     Dosage: 50MG PER DAY
     Route: 048
     Dates: start: 20070612, end: 20070718
  4. DALACINE [Concomitant]
     Dosage: 600MG FOUR TIMES PER DAY
     Route: 048
     Dates: start: 20070613, end: 20070718
  5. KESTIN [Concomitant]
     Route: 048

REACTIONS (2)
  - PRURITUS [None]
  - RASH [None]
